FAERS Safety Report 6277964-7 (Version None)
Quarter: 2009Q3

REPORT INFORMATION
  Report Type: 
  Country: None (occurrence: None)
  Receive Date: 20090722
  Receipt Date: 20090709
  Transmission Date: 20100115
  Serious: Yes (Death, Hospitalization, Other)
  Sender: FDA-Public Use
  Company Number: JP-PFIZER INC-2008087703

PATIENT
  Age: 64 Year

DRUGS (13)
  1. AZULFIDINE [Suspect]
     Indication: RHEUMATOID ARTHRITIS
     Dosage: UNK
     Route: 048
     Dates: start: 19991201, end: 20050101
  2. RIMATIL [Suspect]
     Indication: RHEUMATOID ARTHRITIS
     Dosage: UNK
     Route: 048
     Dates: start: 19950101, end: 20050101
  3. SHIOSOL [Suspect]
     Indication: RHEUMATOID ARTHRITIS
     Dosage: 5 MG, WEEKLY
     Dates: start: 19950101, end: 20050101
  4. PREDNISOLONE [Concomitant]
     Dosage: 20 MG, 1X/DAY
     Route: 048
     Dates: start: 19980701
  5. TAKEPRON [Concomitant]
     Dosage: UNK
     Route: 048
  6. LASIX [Concomitant]
     Dosage: UNK
     Route: 048
  7. ALDACTONE [Concomitant]
     Dosage: UNK
     Route: 048
  8. SLOW-K [Concomitant]
     Dosage: UNK
     Route: 048
  9. LIPITOR [Concomitant]
     Dosage: UNK
     Route: 048
  10. MUCODYNE [Concomitant]
     Dosage: UNK
     Route: 048
  11. MUCOSOLVAN [Concomitant]
     Dosage: UNK
     Route: 048
  12. CRAVIT [Concomitant]
     Dosage: UNK
     Route: 048
  13. BAKTAR [Concomitant]
     Dosage: UNK
     Route: 048
     Dates: start: 20080304

REACTIONS (5)
  - DEEP VEIN THROMBOSIS [None]
  - INTERSTITIAL LUNG DISEASE [None]
  - MYELODYSPLASTIC SYNDROME [None]
  - PULMONARY FIBROSIS [None]
  - SMALL INTESTINE CARCINOMA [None]
